FAERS Safety Report 10236110 (Version 2)
Quarter: 2014Q2

REPORT INFORMATION
  Report Type: Spontaneous
  Country: JP (occurrence: JP)
  Receive Date: 20140613
  Receipt Date: 20140627
  Transmission Date: 20141212
  Serious: Yes (Other)
  Sender: FDA-Public Use
  Company Number: JP-VERTEX PHARMACEUTICALS INC-2014-002696

PATIENT
  Age: 64 Year
  Sex: Male

DRUGS (5)
  1. TELAVIC [Suspect]
     Indication: HEPATITIS C
     Dosage: UNK MG, UNK
     Route: 048
     Dates: start: 20130717
  2. PEGINTERFERON [Suspect]
     Indication: HEPATITIS C
     Route: 058
  3. RIBAVIRIN [Suspect]
     Indication: HEPATITIS C
     Route: 048
  4. TACROLIMUS [Suspect]
     Indication: IMMUNOSUPPRESSANT DRUG THERAPY
     Dosage: 2 MG, QD
     Route: 048
  5. TACROLIMUS [Suspect]
     Dosage: 1 MG, UNK
     Route: 048

REACTIONS (4)
  - Pancytopenia [Unknown]
  - Blood creatinine increased [Recovering/Resolving]
  - Haemoglobin decreased [Recovering/Resolving]
  - Platelet count decreased [Recovering/Resolving]
